FAERS Safety Report 5725953-0 (Version None)
Quarter: 2008Q2

REPORT INFORMATION
  Report Type: 
  Country: None (occurrence: None)
  Receive Date: 20080502
  Receipt Date: 20080401
  Transmission Date: 20081010
  Serious: No
  Sender: FDA-Public Use
  Company Number: US-BAYER-200818832NA

PATIENT
  Age: 27 Year
  Sex: Female
  Weight: 96 kg

DRUGS (2)
  1. MIRENA [Suspect]
     Indication: CONTRACEPTION
     Route: 015
     Dates: start: 20031201
  2. LEXAPRO [Concomitant]

REACTIONS (1)
  - METRORRHAGIA [None]
